FAERS Safety Report 7917693-4 (Version None)
Quarter: 2011Q4

REPORT INFORMATION
  Report Type: 
  Country: None (occurrence: None)
  Receive Date: 20111116
  Receipt Date: 20111108
  Transmission Date: 20120403
  Serious: Yes (Other)
  Sender: FDA-Public Use
  Company Number: US-BRISTOL-MYERS SQUIBB COMPANY-16222804

PATIENT
  Age: 46 Year
  Sex: Female

DRUGS (2)
  1. KOMBIGLYZE XR [Suspect]
     Indication: TYPE 2 DIABETES MELLITUS
     Dosage: TABS
     Route: 048
     Dates: start: 20111014
  2. LIPITOR [Suspect]
     Indication: BLOOD CHOLESTEROL ABNORMAL
     Dosage: TABS,STOPPED:MAY2011, RESTARTED:14OCT2011.
     Route: 048

REACTIONS (3)
  - MUSCLE SPASMS [None]
  - DYSPNOEA [None]
  - MYALGIA [None]
